FAERS Safety Report 8628312 (Version 3)
Quarter: 2012Q4

REPORT INFORMATION
  Report Type: 
  Country: DE (occurrence: DE)
  Receive Date: 20120621
  Receipt Date: 20120906
  Transmission Date: 20130627
  Serious: Yes (Hospitalization)
  Sender: FDA-Public Use
  Company Number: PHHO2012DE008916

PATIENT
  Age: 59 Year
  Sex: Female
  Weight: 157 kg

DRUGS (3)
  1. MYCOPHENOLIC ACID [Suspect]
     Indication: PANCREAS TRANSPLANT
     Dosage: 720 mg, BID
     Route: 048
     Dates: start: 20120130
  2. PREDNISOLON [Concomitant]
     Dosage: 5 mg, QD
     Route: 048
     Dates: start: 20120130
  3. PROGRAF [Concomitant]
     Dosage: 5 mg, BID
     Route: 048
     Dates: start: 20120130

REACTIONS (3)
  - Urinary tract disorder [Recovered/Resolved with Sequelae]
  - Urinary tract infection [Unknown]
  - Blood creatinine increased [Recovered/Resolved]
